FAERS Safety Report 6092308-1 (Version None)
Quarter: 2009Q1

REPORT INFORMATION
  Report Type: 
  Country: None (occurrence: None)
  Receive Date: 20090225
  Receipt Date: 20090220
  Transmission Date: 20090719
  Serious: Yes (Hospitalization)
  Sender: FDA-Public Use
  Company Number: B0560772A

PATIENT
  Age: 82 Year
  Sex: Male

DRUGS (6)
  1. AUGMENTIN '125' [Suspect]
     Dosage: 3G PER DAY
     Route: 048
     Dates: start: 20090115, end: 20090120
  2. MABTHERA [Suspect]
     Indication: DRUG USE FOR UNKNOWN INDICATION
     Route: 065
     Dates: start: 20081223
  3. GLUCOPHAGE [Concomitant]
     Dates: start: 20081201
  4. XANAX [Concomitant]
     Route: 065
     Dates: start: 20081201
  5. CORTANCYL [Concomitant]
     Route: 065
     Dates: start: 20081001, end: 20090101
  6. SOLU-MEDROL [Concomitant]
     Route: 065
     Dates: start: 20081001

REACTIONS (5)
  - ACTIVATED PARTIAL THROMBOPLASTIN TIME PROLONGED [None]
  - ANTI FACTOR VIII ANTIBODY POSITIVE [None]
  - COAGULATION FACTOR VIII LEVEL DECREASED [None]
  - DYSPNOEA [None]
  - ECCHYMOSIS [None]
